FAERS Safety Report 5423921-X (Version None)
Quarter: 2007Q3

REPORT INFORMATION
  Report Type: 
  Country: None (occurrence: None)
  Receive Date: 20070823
  Receipt Date: 20070810
  Transmission Date: 20080115
  Serious: Yes (Hospitalization)
  Sender: FDA-Public Use
  Company Number: BR-ELI_LILLY_AND_COMPANY-BR200708003955

PATIENT
  Age: 42 Year
  Sex: Male
  Weight: 98 kg

DRUGS (7)
  1. CYMBALTA [Suspect]
     Indication: OBSESSIVE-COMPULSIVE DISORDER
     Dosage: 60 MG, EACH MORNING
     Route: 048
     Dates: start: 20070709, end: 20070727
  2. CYMBALTA [Suspect]
     Dosage: 30 MG, EACH EVENING
     Route: 048
     Dates: start: 20070709, end: 20070727
  3. CYMBALTA [Suspect]
     Dosage: 60 MG, OTHER
     Route: 048
     Dates: start: 20070727
  4. CYMBALTA [Suspect]
     Dosage: 30 MG, OTHER
     Route: 048
     Dates: start: 20070727
  5. FRONTAL [Concomitant]
     Indication: NERVOUSNESS
     Dosage: UNK, AS NEEDED
     Route: 048
  6. RANITIDINE [Concomitant]
     Indication: STOMACH DISCOMFORT
     Dosage: UNK, AS NEEDED
     Route: 048
  7. SANDOMIGRAN [Concomitant]
     Indication: MIGRAINE
     Dosage: UNK, UNKNOWN
     Route: 048

REACTIONS (4)
  - BLOOD PRESSURE INCREASED [None]
  - CONFUSIONAL STATE [None]
  - DIZZINESS [None]
  - NERVOUSNESS [None]
